FAERS Safety Report 10630358 (Version 2)
Quarter: 2014Q4

REPORT INFORMATION
  Report Type: Spontaneous
  Country: US (occurrence: US)
  Receive Date: 20141205
  Receipt Date: 20141205
  Transmission Date: 20150529
  Serious: No
  Sender: FDA-Public Use
  Company Number: US-BRISTOL-MYERS SQUIBB COMPANY-20658977

PATIENT
  Age: 37 Year
  Sex: Male
  Weight: 79.36 kg

DRUGS (1)
  1. METFORMIN HCL [Suspect]
     Active Substance: METFORMIN HYDROCHLORIDE
     Dosage: TAB

REACTIONS (2)
  - Muscle spasms [Unknown]
  - Gastric disorder [Unknown]
